FAERS Safety Report 13796931 (Version 1)
Quarter: 2017Q3

REPORT INFORMATION
  Report Type: Spontaneous
  Country: HK (occurrence: HK)
  Receive Date: 20170726
  Receipt Date: 20170726
  Transmission Date: 20171127
  Serious: Yes (Other)
  Sender: FDA-Public Use
  Company Number: HK-BAXTER-2017BAX028515

PATIENT
  Age: 39 Year
  Sex: Male

DRUGS (48)
  1. DOXORUBICIN [Suspect]
     Active Substance: DOXORUBICIN
     Indication: METASTASES TO STOMACH
  2. ETOPOSIDE. [Suspect]
     Active Substance: ETOPOSIDE
     Indication: BURKITT^S LYMPHOMA STAGE IV
  3. ETOPOSIDE. [Suspect]
     Active Substance: ETOPOSIDE
     Indication: METASTASES TO CENTRAL NERVOUS SYSTEM
  4. CYTARABINE. [Suspect]
     Active Substance: CYTARABINE
     Indication: METASTASES TO LIVER
     Dosage: HIGH DOSE
     Route: 042
  5. HYDROCORTISONE. [Suspect]
     Active Substance: HYDROCORTISONE
     Indication: METASTASES TO STOMACH
     Route: 037
  6. HYDROCORTISONE. [Suspect]
     Active Substance: HYDROCORTISONE
     Indication: METASTASES TO LIVER
  7. ENDOXAN FOR INJ IG [Suspect]
     Active Substance: CYCLOPHOSPHAMIDE
     Indication: BURKITT^S LYMPHOMA STAGE IV
     Dosage: CODOX-IVAC REGIMEN
     Route: 065
  8. PREDNISOLONE. [Suspect]
     Active Substance: PREDNISOLONE
     Indication: METASTASES TO CENTRAL NERVOUS SYSTEM
  9. DOXORUBICIN [Suspect]
     Active Substance: DOXORUBICIN
     Indication: METASTASES TO LIVER
     Dosage: CODOX-IVAC REGIMEN
     Route: 065
  10. CYTARABINE. [Suspect]
     Active Substance: CYTARABINE
     Indication: METASTASES TO STOMACH
  11. INDINAVIR [Concomitant]
     Active Substance: INDINAVIR
     Indication: ANTIRETROVIRAL THERAPY
     Dosage: HAART
     Route: 065
  12. HOLOXAN INJ IV (IFOSFAMIDE 1G/1 VIAL) [Suspect]
     Active Substance: IFOSFAMIDE
     Indication: METASTASES TO STOMACH
     Dosage: CODOX-IVAC REGIMEN
     Route: 065
  13. HOLOXAN INJ IV (IFOSFAMIDE 1G/1 VIAL) [Suspect]
     Active Substance: IFOSFAMIDE
     Indication: METASTASES TO BONE MARROW
  14. HOLOXAN INJ IV (IFOSFAMIDE 1G/1 VIAL) [Suspect]
     Active Substance: IFOSFAMIDE
     Indication: METASTASES TO LIVER
  15. VINCRISTINE [Suspect]
     Active Substance: VINCRISTINE
     Indication: METASTASES TO LIVER
     Dosage: CVP REGIMEN
     Route: 065
  16. VINCRISTINE [Suspect]
     Active Substance: VINCRISTINE
     Indication: METASTASES TO STOMACH
  17. PREDNISOLONE. [Suspect]
     Active Substance: PREDNISOLONE
     Indication: BURKITT^S LYMPHOMA STAGE IV
  18. METHOTREXATE. [Suspect]
     Active Substance: METHOTREXATE
     Indication: METASTASES TO STOMACH
     Dosage: HIGH DOSE
     Route: 042
  19. METHOTREXATE. [Suspect]
     Active Substance: METHOTREXATE
     Indication: METASTASES TO BONE MARROW
  20. ETOPOSIDE. [Suspect]
     Active Substance: ETOPOSIDE
     Indication: METASTASES TO BONE MARROW
  21. LAMIVUDINE. [Concomitant]
     Active Substance: LAMIVUDINE
     Indication: ANTIRETROVIRAL THERAPY
     Dosage: HAART
     Route: 065
  22. ENDOXAN FOR INJ IG [Suspect]
     Active Substance: CYCLOPHOSPHAMIDE
     Indication: METASTASES TO CENTRAL NERVOUS SYSTEM
  23. ENDOXAN FOR INJ IG [Suspect]
     Active Substance: CYCLOPHOSPHAMIDE
     Indication: METASTASES TO BONE MARROW
  24. HOLOXAN INJ IV (IFOSFAMIDE 1G/1 VIAL) [Suspect]
     Active Substance: IFOSFAMIDE
     Indication: METASTASES TO CENTRAL NERVOUS SYSTEM
  25. DOXORUBICIN [Suspect]
     Active Substance: DOXORUBICIN
     Indication: METASTASES TO CENTRAL NERVOUS SYSTEM
  26. METHOTREXATE. [Suspect]
     Active Substance: METHOTREXATE
     Indication: METASTASES TO LIVER
  27. ENDOXAN FOR INJ IG [Suspect]
     Active Substance: CYCLOPHOSPHAMIDE
     Indication: METASTASES TO STOMACH
     Dosage: CVP REGIMEN
     Route: 065
  28. VINCRISTINE [Suspect]
     Active Substance: VINCRISTINE
     Indication: METASTASES TO BONE MARROW
     Dosage: CODOX-IVAC REGIMEN
     Route: 065
  29. PREDNISOLONE. [Suspect]
     Active Substance: PREDNISOLONE
     Indication: METASTASES TO STOMACH
     Dosage: CVP REGIMEN
     Route: 065
  30. METHOTREXATE. [Suspect]
     Active Substance: METHOTREXATE
     Indication: METASTASES TO CENTRAL NERVOUS SYSTEM
     Route: 037
  31. CYTARABINE. [Suspect]
     Active Substance: CYTARABINE
     Indication: BURKITT^S LYMPHOMA STAGE IV
  32. VINCRISTINE [Suspect]
     Active Substance: VINCRISTINE
     Indication: METASTASES TO CENTRAL NERVOUS SYSTEM
     Dosage: DOSE REDUCED
     Route: 065
  33. METHOTREXATE. [Suspect]
     Active Substance: METHOTREXATE
     Indication: BURKITT^S LYMPHOMA STAGE IV
     Dosage: CODOX-IVAC REGIMEN
     Route: 065
  34. ETOPOSIDE. [Suspect]
     Active Substance: ETOPOSIDE
     Indication: METASTASES TO LIVER
     Dosage: CODOX-IVAC REGIMEN
     Route: 065
  35. ETOPOSIDE. [Suspect]
     Active Substance: ETOPOSIDE
     Indication: METASTASES TO STOMACH
  36. CYTARABINE. [Suspect]
     Active Substance: CYTARABINE
     Indication: METASTASES TO BONE MARROW
     Dosage: CODOX-IVAC REGIMEN
     Route: 065
  37. HYDROCORTISONE. [Suspect]
     Active Substance: HYDROCORTISONE
     Indication: BURKITT^S LYMPHOMA STAGE IV
  38. PREDNISOLONE. [Suspect]
     Active Substance: PREDNISOLONE
     Indication: METASTASES TO BONE MARROW
  39. DOXORUBICIN [Suspect]
     Active Substance: DOXORUBICIN
     Indication: METASTASES TO BONE MARROW
  40. DOXORUBICIN [Suspect]
     Active Substance: DOXORUBICIN
     Indication: BURKITT^S LYMPHOMA STAGE IV
  41. CYTARABINE. [Suspect]
     Active Substance: CYTARABINE
     Indication: METASTASES TO CENTRAL NERVOUS SYSTEM
     Route: 037
  42. HYDROCORTISONE. [Suspect]
     Active Substance: HYDROCORTISONE
     Indication: METASTASES TO BONE MARROW
  43. ENDOXAN FOR INJ IG [Suspect]
     Active Substance: CYCLOPHOSPHAMIDE
     Indication: METASTASES TO LIVER
  44. HOLOXAN INJ IV (IFOSFAMIDE 1G/1 VIAL) [Suspect]
     Active Substance: IFOSFAMIDE
     Indication: BURKITT^S LYMPHOMA STAGE IV
  45. VINCRISTINE [Suspect]
     Active Substance: VINCRISTINE
     Indication: BURKITT^S LYMPHOMA STAGE IV
  46. PREDNISOLONE. [Suspect]
     Active Substance: PREDNISOLONE
     Indication: METASTASES TO LIVER
  47. HYDROCORTISONE. [Suspect]
     Active Substance: HYDROCORTISONE
     Indication: METASTASES TO CENTRAL NERVOUS SYSTEM
  48. STAVUDINE. [Concomitant]
     Active Substance: STAVUDINE
     Indication: ANTIRETROVIRAL THERAPY
     Dosage: HAART
     Route: 065

REACTIONS (4)
  - Diarrhoea haemorrhagic [Unknown]
  - Febrile neutropenia [Unknown]
  - Mucosal inflammation [Unknown]
  - Subcutaneous abscess [Unknown]
